FAERS Safety Report 4334280-8 (Version None)
Quarter: 2004Q1

REPORT INFORMATION
  Report Type: 
  Country: None (occurrence: None)
  Receive Date: 20040329
  Receipt Date: 20040129
  Transmission Date: 20041129
  Serious: No
  Sender: FDA-Public Use
  Company Number: 03P-163-0238323-00

PATIENT
  Age: 66 Year
  Sex: Female
  Weight: 61.2356 kg

DRUGS (8)
  1. HUMIRA [Suspect]
     Indication: RHEUMATOID ARTHRITIS
     Dosage: 40 MG, 1 IN 2 WK, SUBCUTANEOUS
     Route: 058
     Dates: start: 20030201, end: 20031016
  2. PREDNISONE [Concomitant]
  3. MULTI-VITAMINS [Concomitant]
  4. LITHIUM [Concomitant]
  5. OMEPRAZOLE [Concomitant]
  6. FLUOCINONIDE [Concomitant]
  7. BETAMETHASONE DIPROPIONATE [Concomitant]
  8. CLOBETASOL [Concomitant]

REACTIONS (3)
  - HYPERSENSITIVITY [None]
  - INJECTION SITE REACTION [None]
  - RASH GENERALISED [None]
